FAERS Safety Report 7821147-3 (Version None)
Quarter: 2011Q4

REPORT INFORMATION
  Report Type: 
  Country: None (occurrence: None)
  Receive Date: 20111018
  Receipt Date: 20111005
  Transmission Date: 20120403
  Serious: Yes (Other)
  Sender: FDA-Public Use
  Company Number: AR-ROCHE-1003554

PATIENT
  Sex: Female

DRUGS (3)
  1. LUCENTIS [Suspect]
     Indication: MACULOPATHY
     Dosage: REGIMEN 1
     Route: 050
     Dates: start: 20110301
  2. LUCENTIS [Suspect]
     Route: 050
     Dates: start: 20110301
  3. LUCENTIS [Suspect]
     Route: 050
     Dates: start: 20110301

REACTIONS (4)
  - VISUAL ACUITY REDUCED [None]
  - VISUAL IMPAIRMENT [None]
  - RETINAL EXUDATES [None]
  - DRUG INEFFECTIVE [None]
